FAERS Safety Report 7324538-2 (Version None)
Quarter: 2011Q1

REPORT INFORMATION
  Report Type: 
  Country: None (occurrence: None)
  Receive Date: 20110301
  Receipt Date: 20110218
  Transmission Date: 20110831
  Serious: Yes (Other)
  Sender: FDA-Public Use
  Company Number: PHHY2010TW72724

PATIENT
  Sex: Female
  Weight: 59 kg

DRUGS (1)
  1. ZOLEDRONATE [Suspect]
     Indication: METASTASES TO BONE
     Dosage: 4 MG, PER MONTH
     Dates: start: 20090225, end: 20100303

REACTIONS (6)
  - OPEN WOUND [None]
  - GINGIVAL INFECTION [None]
  - TOOTHACHE [None]
  - PURULENCE [None]
  - OSTEONECROSIS OF JAW [None]
  - IMPAIRED HEALING [None]
